FAERS Safety Report 7017203-2 (Version None)
Quarter: 2010Q3

REPORT INFORMATION
  Report Type: 
  Country: None (occurrence: None)
  Receive Date: 20100928
  Receipt Date: 20100917
  Transmission Date: 20110219
  Serious: No
  Sender: FDA-Public Use
  Company Number: US-BIOGENIDEC-2010BI032811

PATIENT
  Sex: Female

DRUGS (1)
  1. TYSABRI [Suspect]
     Indication: MULTIPLE SCLEROSIS
     Route: 042
     Dates: start: 20080501

REACTIONS (6)
  - ANXIETY [None]
  - COUGH [None]
  - HYPERTENSION [None]
  - PAIN IN EXTREMITY [None]
  - POOR VENOUS ACCESS [None]
  - SINUS DISORDER [None]
